FAERS Safety Report 15065818 (Version 2)
Quarter: 2018Q2

REPORT INFORMATION
  Report Type: Spontaneous
  Country: US (occurrence: US)
  Receive Date: 20180626
  Receipt Date: 20180626
  Transmission Date: 20180711
  Serious: Yes (Other)
  Sender: FDA-Public Use
  Company Number: US-GILEAD-2018-0345539

PATIENT
  Sex: Male

DRUGS (2)
  1. EPCLUSA [Suspect]
     Active Substance: SOFOSBUVIR\VELPATASVIR
     Indication: HEPATITIS C
     Dosage: UNK
     Route: 065
     Dates: start: 2017, end: 2018
  2. RIBAVIRIN. [Suspect]
     Active Substance: RIBAVIRIN
     Indication: HEPATITIS C
     Dosage: UNK
     Route: 065
     Dates: start: 2017, end: 2018

REACTIONS (6)
  - Blood glucose abnormal [Not Recovered/Not Resolved]
  - Treatment noncompliance [Unknown]
  - Drug ineffective [Not Recovered/Not Resolved]
  - Hepatitis C [Not Recovered/Not Resolved]
  - Hepatic cirrhosis [Unknown]
  - Type 2 diabetes mellitus [Not Recovered/Not Resolved]
